FAERS Safety Report 13742433 (Version 1)
Quarter: 2017Q3

REPORT INFORMATION
  Report Type: Spontaneous
  Country: DE (occurrence: DE)
  Receive Date: 20170711
  Receipt Date: 20170711
  Transmission Date: 20171127
  Serious: Yes (Other)
  Sender: FDA-Public Use
  Company Number: DE-AUROBINDO-AUR-APL-2017-37051

PATIENT
  Age: 55 Year
  Sex: Female

DRUGS (2)
  1. FLECAINIDE PUREN 50 MG TABLETS [Suspect]
     Active Substance: FLECAINIDE
     Indication: ARRHYTHMIA
     Dosage: UNK, TWO TIMES A DAY
     Route: 048
     Dates: start: 2016
  2. LIDOCAINE SOLUTION FOR INJECTION [Interacting]
     Active Substance: LIDOCAINE
     Indication: ARTHRALGIA
     Dosage: UNK
     Route: 065
     Dates: start: 20170628, end: 20170628

REACTIONS (2)
  - Drug interaction [Recovered/Resolved]
  - Arrhythmia [Recovering/Resolving]

NARRATIVE: CASE EVENT DATE: 20170628
